FAERS Safety Report 16710275 (Version 1)
Quarter: 2019Q3

REPORT INFORMATION
  Report Type: Spontaneous
  Country: US (occurrence: US)
  Receive Date: 20190816
  Receipt Date: 20190816
  Transmission Date: 20191004
  Serious: No
  Sender: FDA-Public Use
  Company Number: US-ASTRAZENECA-2019SF04900

PATIENT
  Age: 64 Year
  Sex: Female

DRUGS (6)
  1. FASLODEX [Suspect]
     Active Substance: FULVESTRANT
     Indication: BREAST CANCER FEMALE
     Dosage: MONTHLY
     Route: 030
     Dates: end: 2019
  2. IBRANCE [Suspect]
     Active Substance: PALBOCICLIB
     Indication: BREAST CANCER
     Dosage: 100.0MG UNKNOWN
     Route: 048
     Dates: start: 201812
  3. HERBAL NOS [Concomitant]
     Active Substance: HERBALS
  4. IBRANCE [Suspect]
     Active Substance: PALBOCICLIB
     Indication: BREAST CANCER
     Dosage: 50 MG OR 75MG UNKNOWN
     Route: 048
     Dates: end: 2019
  5. BAYER APIRIN [Concomitant]
     Dosage: 2 BAYER ASPIRIN AS REQUIRED
     Route: 048
  6. FASLODEX [Suspect]
     Active Substance: FULVESTRANT
     Indication: BREAST CANCER FEMALE
     Dosage: MONTHLY
     Route: 030
     Dates: start: 201812

REACTIONS (10)
  - Dyspnoea [Recovered/Resolved with Sequelae]
  - Blood pressure increased [Not Recovered/Not Resolved]
  - Cough [Recovered/Resolved with Sequelae]
  - Dysphonia [Not Recovered/Not Resolved]
  - Fatigue [Recovering/Resolving]
  - White blood cell count decreased [Recovering/Resolving]
  - Limb discomfort [Unknown]
  - Respiratory tract inflammation [Recovered/Resolved with Sequelae]
  - Headache [Recovered/Resolved]
  - Cardiac discomfort [Unknown]

NARRATIVE: CASE EVENT DATE: 2019
